FAERS Safety Report 23461732 (Version 1)
Quarter: 2024Q1

REPORT INFORMATION
  Report Type: Spontaneous
  Country: ES (occurrence: ES)
  Receive Date: 20240131
  Receipt Date: 20240131
  Transmission Date: 20240409
  Serious: Yes (Other)
  Sender: FDA-Public Use
  Company Number: None

PATIENT
  Age: 31 Year
  Sex: Male

DRUGS (5)
  1. EMTRICITABINE\TENOFOVIR DISOPROXIL [Suspect]
     Active Substance: EMTRICITABINE\TENOFOVIR DISOPROXIL
     Indication: Prophylaxis against HIV infection
     Dosage: 1 DOSAGE FORM, QD
     Route: 048
     Dates: start: 20231017, end: 20231201
  2. HUMALOG JUNIOR KWIKPEN [Concomitant]
     Active Substance: INSULIN LISPRO
     Indication: Diabetes mellitus
     Dosage: UNK
     Route: 065
  3. NASONEX [Concomitant]
     Active Substance: MOMETASONE FUROATE
     Dosage: 50 MICROGRAM, PRN
     Route: 065
     Dates: start: 20230713
  4. TEBARAT [Concomitant]
     Dosage: 2 DOSAGE FORM, PRN (EVERY 12 HOURS IF NECESSARY)STRENGTH- 0.5 MG/ML
     Route: 065
     Dates: start: 20230713
  5. TOUJEO [Concomitant]
     Active Substance: INSULIN GLARGINE
     Indication: Diabetes mellitus
     Dosage: 24 DOSAGE FORM, QD (STRENGTH-300 UNITS/ML)
     Route: 065
     Dates: start: 20200226

REACTIONS (1)
  - Hypoglycaemia [Recovered/Resolved]

NARRATIVE: CASE EVENT DATE: 20231101
